FAERS Safety Report 6296729-3 (Version None)
Quarter: 2009Q3

REPORT INFORMATION
  Report Type: 
  Country: None (occurrence: None)
  Receive Date: 20090804
  Receipt Date: 20090727
  Transmission Date: 20100115
  Serious: Yes (Other)
  Sender: FDA-Public Use
  Company Number: FR-AVENTIS-200910734FR

PATIENT
  Age: 71 Year
  Sex: Male

DRUGS (2)
  1. GLYBURIDE [Suspect]
     Route: 048
  2. METFORMIN HCL [Concomitant]
     Route: 048

REACTIONS (3)
  - ANTINUCLEAR ANTIBODY POSITIVE [None]
  - MYALGIA [None]
  - RHEUMATOID ARTHRITIS [None]
